FAERS Safety Report 5053819-0 (Version None)
Quarter: 2006Q3

REPORT INFORMATION
  Report Type: 
  Country: None (occurrence: None)
  Receive Date: 20060718
  Receipt Date: 20060711
  Transmission Date: 20061208
  Serious: Yes (Death, Life-Threatening, Hospitalization)
  Sender: FDA-Public Use
  Company Number: BR-GLAXOSMITHKLINE-A0612355A

PATIENT
  Age: 2 Month
  Sex: Female

DRUGS (2)
  1. DIGOXIN [Suspect]
     Indication: HEART DISEASE CONGENITAL
     Dosage: .3ML THREE TIMES PER DAY
     Dates: start: 20060210, end: 20060215
  2. UNSPECIFIED MEDICATION [Concomitant]

REACTIONS (4)
  - CARDIAC FAILURE [None]
  - MEDICATION ERROR [None]
  - PSYCHOMOTOR HYPERACTIVITY [None]
  - VOMITING [None]
